FAERS Safety Report 18615490 (Version 1)
Quarter: 2020Q4

REPORT INFORMATION
  Report Type: Spontaneous
  Country: US (occurrence: US)
  Receive Date: 20201215
  Receipt Date: 20201215
  Transmission Date: 20210114
  Serious: No
  Sender: FDA-Public Use
  Company Number: US-LUPIN PHARMACEUTICALS INC.-2020-10163

PATIENT
  Age: 53 Year

DRUGS (3)
  1. BUTORPHANOL [Concomitant]
     Active Substance: BUTORPHANOL
     Indication: NEURODERMATITIS
     Dosage: 10 MILLIGRAM PER MILLILITRE, PRN-UPTO 4 HRS
     Route: 065
  2. GABAPENTIN. [Suspect]
     Active Substance: GABAPENTIN
     Indication: NEURODERMATITIS
     Dosage: UNK
     Route: 065
  3. FLUOCINONIDE. [Suspect]
     Active Substance: FLUOCINONIDE
     Indication: NEURODERMATITIS
     Dosage: UNK
     Route: 065

REACTIONS (1)
  - Treatment failure [Unknown]
